FAERS Safety Report 9839050 (Version 1)
Quarter: 2014Q1

REPORT INFORMATION
  Report Type: Spontaneous
  Country: TR (occurrence: TR)
  Receive Date: 20140123
  Receipt Date: 20140123
  Transmission Date: 20141002
  Serious: Yes (Death, Other)
  Sender: FDA-Public Use
  Company Number: PHHY2014TR004120

PATIENT
  Age: 47 Year
  Sex: Female

DRUGS (3)
  1. IDARUBICIN [Suspect]
     Indication: ACUTE PROMYELOCYTIC LEUKAEMIA
     Dosage: 5 MG/M2, DAILY
  2. CYTARABINE [Suspect]
     Indication: ACUTE PROMYELOCYTIC LEUKAEMIA
     Dosage: 1 G/M2 DAY, UNK
  3. RETINOIC ACID [Suspect]
     Indication: ACUTE PROMYELOCYTIC LEUKAEMIA
     Dosage: 45 MG/M2, PER DAY

REACTIONS (4)
  - Multi-organ disorder [Fatal]
  - Respiratory disorder [Fatal]
  - Pancytopenia [Unknown]
  - Febrile neutropenia [Unknown]
